FAERS Safety Report 6613407-9 (Version None)
Quarter: 2010Q1

REPORT INFORMATION
  Report Type: 
  Country: None (occurrence: None)
  Receive Date: 20100304
  Receipt Date: 20100225
  Transmission Date: 20100710
  Serious: Yes (Death)
  Sender: FDA-Public Use
  Company Number: US-ALLERGAN-1002470US

PATIENT
  Age: 81 Year
  Sex: Female

DRUGS (8)
  1. BOTOX [Suspect]
     Indication: MUSCLE SPASTICITY
     Dosage: 300 UNITS, SINGLE
     Route: 030
     Dates: start: 20100223, end: 20100223
  2. METOPROLOL TARTRATE [Concomitant]
     Indication: HYPERTENSION
  3. ASPIRIN [Concomitant]
  4. FLEXERIL [Concomitant]
     Indication: MUSCLE SPASTICITY
  5. EXELON [Concomitant]
     Indication: AMNESIA
  6. ZOCOR [Concomitant]
  7. SELEGILANE [Concomitant]
     Indication: PARKINSON'S DISEASE
  8. SINEMET [Concomitant]

REACTIONS (1)
  - DEATH [None]
